FAERS Safety Report 9281888 (Version 6)
Quarter: 2014Q1

REPORT INFORMATION
  Report Type: Report from Study
  Country: BR (occurrence: BR)
  Receive Date: 20130510
  Receipt Date: 20140331
  Transmission Date: 20141002
  Serious: Yes (Hospitalization, Other)
  Sender: FDA-Public Use
  Company Number: BR-ROCHE-1173872

PATIENT
  Age: 52 Year
  Sex: Female
  Weight: 49 kg

DRUGS (8)
  1. ACTEMRA [Suspect]
     Indication: RHEUMATOID ARTHRITIS
     Route: 042
     Dates: start: 20120119, end: 20121112
  2. MABTHERA [Suspect]
     Indication: RHEUMATOID ARTHRITIS
     Route: 065
     Dates: start: 20130220
  3. MABTHERA [Suspect]
     Route: 065
     Dates: start: 20130308
  4. ARAVA [Suspect]
     Indication: PRODUCT USED FOR UNKNOWN INDICATION
     Route: 065
  5. METHOTREXATE [Suspect]
     Indication: PRODUCT USED FOR UNKNOWN INDICATION
     Route: 065
  6. CORTISONE [Concomitant]
     Route: 065
  7. LOSARTAN [Concomitant]
     Route: 065
  8. CORUS H [Concomitant]

REACTIONS (25)
  - Pneumonia [Recovered/Resolved]
  - Agranulocytosis [Recovered/Resolved]
  - Pancytopenia [Recovered/Resolved]
  - Syncope [Unknown]
  - Bone marrow toxicity [Unknown]
  - Sinusitis [Unknown]
  - Immunodeficiency [Recovering/Resolving]
  - Pyrexia [Unknown]
  - Cough [Unknown]
  - White blood cell count decreased [Recovered/Resolved]
  - Platelet count decreased [Recovered/Resolved]
  - Dysuria [Unknown]
  - Urinary tract infection [Recovered/Resolved]
  - Red blood cell count decreased [Unknown]
  - Haemoglobin decreased [Unknown]
  - Haematocrit decreased [Unknown]
  - Aspartate aminotransferase increased [Unknown]
  - Alanine aminotransferase increased [Unknown]
  - Blood urea increased [Unknown]
  - Hypertension [Unknown]
  - Dizziness [Unknown]
  - Cold sweat [Unknown]
  - Asthenia [Unknown]
  - Depressed mood [Unknown]
  - Rheumatoid arthritis [Recovered/Resolved]
